FAERS Safety Report 7345043-3 (Version None)
Quarter: 2011Q1

REPORT INFORMATION
  Report Type: 
  Country: None (occurrence: None)
  Receive Date: 20110310
  Receipt Date: 20110302
  Transmission Date: 20110831
  Serious: Yes (Other)
  Sender: FDA-Public Use
  Company Number: AU-SANOFI-AVENTIS-2011SA012881

PATIENT
  Sex: Male

DRUGS (7)
  1. LANTUS [Suspect]
     Route: 058
     Dates: start: 20110224
  2. LIPITOR [Concomitant]
  3. ALLOPURINOL [Concomitant]
  4. ASPIRIN [Concomitant]
  5. MINIPRESS [Concomitant]
  6. METFORMIN [Concomitant]
  7. BETALOC [Concomitant]

REACTIONS (1)
  - SKIN CANCER [None]
